FAERS Safety Report 5422947-X (Version None)
Quarter: 2007Q3

REPORT INFORMATION
  Report Type: 
  Country: None (occurrence: None)
  Receive Date: 20070820
  Receipt Date: 20070801
  Transmission Date: 20080115
  Serious: Yes (Death)
  Sender: FDA-Public Use
  Company Number: 20073983

PATIENT
  Sex: Female

DRUGS (3)
  1. LIORESAL [Suspect]
     Indication: MUSCLE SPASTICITY
     Dosage: 325.9 MCG, DAILY, INTRATHECAL-COM
     Route: 037
  2. DURAGESIC-100 [Concomitant]
  3. RECTAL VALIUM [Concomitant]

REACTIONS (11)
  - ASPHYXIA [None]
  - ASPIRATION [None]
  - BLOOD GLUCOSE DECREASED [None]
  - CARDIO-RESPIRATORY ARREST [None]
  - CONVULSION [None]
  - ILL-DEFINED DISORDER [None]
  - MUSCLE SPASMS [None]
  - PROCEDURAL PAIN [None]
  - PULSE ABSENT [None]
  - PYREXIA [None]
  - VOMITING [None]
